FAERS Safety Report 22537693 (Version 3)
Quarter: 2024Q1

REPORT INFORMATION
  Report Type: Spontaneous
  Country: US (occurrence: US)
  Receive Date: 20230608
  Receipt Date: 20240214
  Transmission Date: 20240410
  Serious: Yes (Other)
  Sender: FDA-Public Use
  Company Number: US-PFIZER INC-202300214797

PATIENT
  Age: 79 Year
  Sex: Male
  Weight: 74.39 kg

DRUGS (11)
  1. VYNDAMAX [Suspect]
     Active Substance: TAFAMIDIS
     Indication: Cardiac failure
     Dosage: 61 MG, 1X/DAY
     Route: 048
     Dates: start: 202304
  2. VYNDAMAX [Suspect]
     Active Substance: TAFAMIDIS
     Indication: Acquired ATTR amyloidosis
  3. CORDARONE [Concomitant]
     Active Substance: AMIODARONE HYDROCHLORIDE
     Dosage: TAKE 1 TABLET EVERY MORNING
     Route: 048
     Dates: start: 20230501
  4. ELIQUIS [Concomitant]
     Active Substance: APIXABAN
     Dosage: TAKE 1 TABLET TWO TIMES DAILY, RESUME SATURDAY MORNING
     Route: 048
     Dates: start: 20230701
  5. FERROUS GLUCONATE [Concomitant]
     Active Substance: FERROUS GLUCONATE
     Dosage: TAKE 324 MG DAILY WITH BREAKFAST
     Route: 048
     Dates: start: 20230701
  6. FOLIC ACID [Concomitant]
     Active Substance: FOLIC ACID
     Dosage: TAKE 1 TABLET DAILY
     Route: 048
  7. PROTONIX [Concomitant]
     Active Substance: PANTOPRAZOLE SODIUM
     Dosage: TAKE 1 TABLET 2 TIMES DAILY
     Route: 048
     Dates: start: 20230701
  8. ALDACTONE [Concomitant]
     Active Substance: SPIRONOLACTONE
     Dosage: TAKE 1 TABLET DAILY
     Route: 048
     Dates: start: 20230701
  9. VITAMIN B1 [Concomitant]
     Active Substance: THIAMINE HYDROCHLORIDE
     Dosage: TAKE 1 TABLET DAILY
     Route: 048
     Dates: start: 20230701
  10. DEMADEX [Concomitant]
     Active Substance: TORSEMIDE
     Dosage: TAKE 3 TABLETS DAILY
     Route: 048
     Dates: start: 20230701
  11. RETINOL [Concomitant]
     Active Substance: RETINOL
     Dosage: TAKE 5 MG DAILY
     Route: 048

REACTIONS (3)
  - Heart rate decreased [Recovered/Resolved]
  - Ulcer haemorrhage [Unknown]
  - Dizziness [Unknown]

NARRATIVE: CASE EVENT DATE: 20230811
